FAERS Safety Report 5693020-0 (Version None)
Quarter: 2008Q2

REPORT INFORMATION
  Report Type: 
  Country: None (occurrence: None)
  Receive Date: 20080403
  Receipt Date: 20080326
  Transmission Date: 20081010
  Serious: Yes (Hospitalization)
  Sender: FDA-Public Use
  Company Number: NZ-JNJFOC-20080305960

PATIENT

DRUGS (2)
  1. REMICADE [Suspect]
     Dosage: 3 DOSES
     Route: 042
  2. REMICADE [Suspect]
     Indication: CROHN'S DISEASE
     Dosage: 3 DOSES
     Route: 042

REACTIONS (4)
  - DYSPHAGIA [None]
  - LIP SWELLING [None]
  - RASH [None]
  - URTICARIA [None]
